FAERS Safety Report 5153524-6 (Version None)
Quarter: 2006Q4

REPORT INFORMATION
  Report Type: 
  Country: None (occurrence: None)
  Receive Date: 20061114
  Receipt Date: 20060911
  Transmission Date: 20070319
  Serious: Yes (Death)
  Sender: FDA-Public Use
  Company Number: 2006SP005321

PATIENT
  Age: 69 Year
  Sex: Male

DRUGS (5)
  1. RINDERON (BETAMETHASONE) (BETAMETHASONE) [Suspect]
     Indication: LARYNGEAL CANCER
     Dosage: 1 MG; QD; PO, SEE IMAGE
     Route: 048
     Dates: start: 20060824, end: 20060828
  2. OXYCONTIN [Suspect]
     Indication: LARYNGEAL CANCER
     Dosage: SEE IMAGE
     Route: 048
     Dates: start: 20060718, end: 20060724
  3. OXYCONTIN [Suspect]
     Indication: LARYNGEAL CANCER
     Dosage: SEE IMAGE
     Route: 048
     Dates: start: 20060725, end: 20060828
  4. HALOPERIDOL [Suspect]
     Indication: LARYNGEAL CANCER
     Dosage: SEE IMAGE
     Route: 048
     Dates: start: 20060816, end: 20060824
  5. HALOPERIDOL [Suspect]
     Indication: LARYNGEAL CANCER
     Dosage: SEE IMAGE
     Route: 048
     Dates: start: 20060825, end: 20060829

REACTIONS (5)
  - DEPRESSED LEVEL OF CONSCIOUSNESS [None]
  - HAEMODIALYSIS [None]
  - HEPATIC FAILURE [None]
  - HEPATITIS FULMINANT [None]
  - PYREXIA [None]
